FAERS Safety Report 15633448 (Version 1)
Quarter: 2018Q4

REPORT INFORMATION
  Report Type: Spontaneous
  Country: US (occurrence: US)
  Receive Date: 20181119
  Receipt Date: 20181119
  Transmission Date: 20190205
  Serious: No
  Sender: FDA-Public Use
  Company Number: US-SANOFI-AVENTIS-2012SA069430

PATIENT
  Age: 61 Year
  Sex: Male

DRUGS (1)
  1. LANTUS SOLOSTAR [Suspect]
     Active Substance: INSULIN GLARGINE
     Indication: TYPE 2 DIABETES MELLITUS
     Dosage: UNK UNK,QD
     Route: 058
     Dates: start: 2007

REACTIONS (3)
  - Product quality issue [Unknown]
  - Injection site pain [Recovered/Resolved]
  - Injection site haemorrhage [Unknown]

NARRATIVE: CASE EVENT DATE: 2012
